FAERS Safety Report 25063256 (Version 1)
Quarter: 2025Q1

REPORT INFORMATION
  Report Type: Spontaneous
  Country: US (occurrence: None)
  Receive Date: 20250310
  Receipt Date: 20250310
  Transmission Date: 20250409
  Serious: Yes (Other)
  Sender: FDA-CTU
  Company Number: None

PATIENT
  Sex: Male

DRUGS (4)
  1. SIMLANDI [Suspect]
     Active Substance: ADALIMUMAB-RYVK
     Indication: Rheumatoid arthritis
     Dosage: INJECT 0.4 ML BY SUBCUTANEOUS ROUTE EVERY 2 WEEKS IN THE ABDOMEN OR THIGH (ROTATE SITES)
     Route: 058
     Dates: start: 20250108
  2. ANTIBIOTIC OIN PAIN RLF [Concomitant]
  3. HUMIRA [Concomitant]
     Active Substance: ADALIMUMAB
  4. PREDNISONE [Concomitant]
     Active Substance: PREDNISONE

REACTIONS (3)
  - Surgery [None]
  - Drug ineffective [None]
  - Intentional dose omission [None]
